FAERS Safety Report 13471587 (Version 1)
Quarter: 2017Q2

REPORT INFORMATION
  Report Type: Spontaneous
  Country: US (occurrence: US)
  Receive Date: 20170424
  Receipt Date: 20170424
  Transmission Date: 20170830
  Serious: No
  Sender: FDA-Public Use
  Company Number: US-PFIZER INC-2017169337

PATIENT
  Age: 53 Year
  Sex: Male
  Weight: 102 kg

DRUGS (3)
  1. EMBEDA [Suspect]
     Active Substance: MORPHINE SULFATE\NALTREXONE HYDROCHLORIDE
     Indication: PAIN
     Dosage: [MORPHINE SULFATE 20 MG],/[NALTREXONE HYDROCHLORIDE 0.8]  (1 TO 2 CAPSULE, EVERY 12 HOURS)
     Route: 048
     Dates: start: 20161220
  2. TYLENOL [Suspect]
     Active Substance: ACETAMINOPHEN
     Indication: PAIN
     Dosage: 300/60 (1 TO 2 TABLETS EVERY 4 TO 6 HOURS)
     Route: 048
     Dates: start: 20160401
  3. OMEPRAZOLE. [Concomitant]
     Active Substance: OMEPRAZOLE
     Indication: DYSPEPSIA
     Dosage: 40 MG, 2X/DAY

REACTIONS (2)
  - Headache [Not Recovered/Not Resolved]
  - Oedema peripheral [Unknown]

NARRATIVE: CASE EVENT DATE: 20170406
